FAERS Safety Report 6386048-9 (Version None)
Quarter: 2009Q4

REPORT INFORMATION
  Report Type: 
  Country: None (occurrence: None)
  Receive Date: 20091002
  Receipt Date: 20081103
  Transmission Date: 20100525
  Serious: Yes (Other)
  Sender: FDA-Public Use
  Company Number: US-ASTRAZENECA-2008UW24546

PATIENT
  Age: 56 Year
  Sex: Female

DRUGS (1)
  1. ARIMIDEX [Suspect]
     Route: 048
     Dates: start: 20050101

REACTIONS (6)
  - ARTHRALGIA [None]
  - HEADACHE [None]
  - HOT FLUSH [None]
  - MOOD SWINGS [None]
  - MYALGIA [None]
  - WRIST FRACTURE [None]
